FAERS Safety Report 6641026-7 (Version None)
Quarter: 2010Q1

REPORT INFORMATION
  Report Type: 
  Country: None (occurrence: None)
  Receive Date: 20100318
  Receipt Date: 20100312
  Transmission Date: 20100710
  Serious: Yes (Hospitalization)
  Sender: FDA-Public Use
  Company Number: D0066118A

PATIENT
  Sex: Female

DRUGS (15)
  1. REQUIP [Suspect]
     Indication: PARKINSON'S DISEASE
     Route: 048
     Dates: start: 20081109, end: 20100125
  2. MADOPAR [Concomitant]
     Route: 065
  3. STALEVO 100 [Concomitant]
     Dosage: 325MG PER DAY
     Route: 065
  4. SELEGILINE HYDROCHLORIDE [Concomitant]
     Route: 065
  5. MICARDIS [Concomitant]
     Dosage: 40MG PER DAY
     Route: 065
  6. VERAPAMIL [Concomitant]
     Dosage: 80MG THREE TIMES PER DAY
     Route: 065
  7. NOVODIGAL [Concomitant]
     Route: 065
  8. CALCIUM [Concomitant]
     Route: 065
  9. SODIUM CHLORIDE [Concomitant]
     Route: 065
  10. LEFAX [Concomitant]
     Route: 065
  11. NEXIUM [Concomitant]
     Dosage: 20MG TWICE PER DAY
     Route: 065
  12. DOMPERIDON [Concomitant]
     Dosage: 10MG PER DAY
     Route: 065
  13. MAGNESIUM [Concomitant]
     Route: 065
  14. MARCUMAR [Concomitant]
     Route: 065
  15. ZOLEDRONIC ACID [Concomitant]
     Route: 065

REACTIONS (6)
  - CYSTITIS NONINFECTIVE [None]
  - DRUG INEFFECTIVE [None]
  - GAIT DISTURBANCE [None]
  - KNEE OPERATION [None]
  - MOBILITY DECREASED [None]
  - PARKINSON'S DISEASE [None]
